FAERS Safety Report 6500377-7 (Version None)
Quarter: 2009Q4

REPORT INFORMATION
  Report Type: 
  Country: None (occurrence: None)
  Receive Date: 20091216
  Receipt Date: 20091203
  Transmission Date: 20100525
  Serious: Yes (Other)
  Sender: FDA-Public Use
  Company Number: PHHY2009FR51072

PATIENT
  Age: 26 Year
  Sex: Female

DRUGS (4)
  1. RITALIN [Suspect]
     Dosage: 60 MG, DAILY
  2. ANAFRANIL [Suspect]
     Dosage: 175 MG, DAILY
  3. XYREM [Suspect]
     Dosage: UNK
     Dates: start: 20050801
  4. XYREM [Suspect]
     Dosage: 4.5 G, BID
     Dates: start: 20061111

REACTIONS (6)
  - CONFUSIONAL STATE [None]
  - DISORIENTATION [None]
  - ENURESIS [None]
  - HYPERHIDROSIS [None]
  - MYOCLONUS [None]
  - SOMNAMBULISM [None]
